FAERS Safety Report 5343422-7 (Version None)
Quarter: 2007Q2

REPORT INFORMATION
  Report Type: 
  Country: None (occurrence: None)
  Receive Date: 20070531
  Receipt Date: 20070525
  Transmission Date: 20071010
  Serious: Yes (Death)
  Sender: FDA-Public Use
  Company Number: THQ2006A00512

PATIENT
  Age: 77 Year
  Sex: Male

DRUGS (22)
  1. LANSOPRAZOLE [Suspect]
     Dosage: 30 MG (30 MG,1 IN 1 D)
  2. ASPIRIN [Suspect]
     Dosage: UNK (75 MG)
  3. ATORVASTATIN CALCIUM [Suspect]
     Dosage: (10 MG)
  4. BECLOMETHASONE DIPROPIONATE [Suspect]
     Dosage: 100 MCG (50 MCG,2 IN 1 D)
  5. COMBIVENT [Suspect]
     Indication: CHRONIC OBSTRUCTIVE PULMONARY DISEASE
     Dosage: RESPIRATORY (INHALATION)
     Route: 055
     Dates: start: 20030617, end: 20040513
  6. DEXAMETHASONE 0.5MG TAB [Suspect]
     Dosage: (2 MG)
  7. DILTIAZEM [Suspect]
     Dosage: 120 MG (60 MG,2 IN 1 D)
  8. DOSULEPIN [Suspect]
     Dosage: 75 MG (75 MG,1 IN 1 D)
  9. FRUMIL [Suspect]
  10. FUROSEMIDE [Suspect]
     Dosage: (80 MG)
  11. GAVISCON [Suspect]
     Dosage: 40 ML (10 ML,4 IN 1 D)
  12. LACTULOSE [Suspect]
     Dosage: (3.35 G)
  13. METOCLOPRAMIDE [Suspect]
     Dosage: 30 MG (10 MG,3 IN 1 D)
  14. NITROGLYCERIN [Suspect]
     Dosage: (400 MG)
  15. NOZINAN (LEVOMEPROMAZINE) [Suspect]
     Dosage: 100 MG (25 MG,4 IN 1 D)
  16. OXYCODONE HCL [Suspect]
     Dosage: 40 MG (20 MG,2 IN 1 D)
  17. OXYGEN [Suspect]
  18. SALBUTAMOL [Suspect]
     Dosage: (100 MCG)
     Route: 055
  19. SPIRIVA [Suspect]
     Indication: CHRONIC OBSTRUCTIVE PULMONARY DISEASE
     Dosage: (18 MCG) RESPIRATORY (INHALATION)
     Route: 055
     Dates: start: 20030617
  20. SPIRONOLACTONE [Suspect]
     Dosage: (50 MG)
  21. SYMBICORT [Suspect]
     Dosage: (2 IN 1 D)
  22. TEMAZEPAM [Suspect]
     Dosage: 10 MG (10 MG,1 IN 1 D)

REACTIONS (1)
  - MESOTHELIOMA [None]
